FAERS Safety Report 10060944 (Version 1)
Quarter: 2014Q2

REPORT INFORMATION
  Report Type: Report from Study
  Country: NL (occurrence: NL)
  Receive Date: 20140404
  Receipt Date: 20140404
  Transmission Date: 20141212
  Serious: Yes (Death)
  Sender: FDA-Public Use
  Company Number: PHHY2013NL155890

PATIENT
  Sex: Male

DRUGS (4)
  1. TOBI [Suspect]
     Indication: CHRONIC OBSTRUCTIVE PULMONARY DISEASE
     Dosage: UNK
     Route: 055
  2. TOBI [Suspect]
     Indication: OFF LABEL USE
  3. IPRAMOL [Concomitant]
     Dosage: UNK
  4. NEBUSAL [Concomitant]
     Dosage: UNK

REACTIONS (1)
  - Death [Fatal]
